FAERS Safety Report 8450203-4 (Version None)
Quarter: 2012Q2

REPORT INFORMATION
  Report Type: 
  Country: None (occurrence: None)
  Receive Date: 20120614
  Receipt Date: 20120614
  Transmission Date: 20120825
  Serious: Yes (Other)
  Sender: FDA-Public Use
  Company Number: None

PATIENT
  Age: 51 Year
  Sex: Female
  Weight: 85.2762 kg

DRUGS (2)
  1. D-AMPHETAMINE SALT COM XR 30MG 2 TIMES DAILY GLOBAL [Suspect]
     Indication: ATTENTION DEFICIT/HYPERACTIVITY DISORDER
     Dosage: 30MG 1X DAILY PO
     Route: 048
     Dates: start: 20000401, end: 20120522
  2. BUPROPION HCL [Suspect]
     Indication: DEPRESSION
     Dosage: 300MG 1X DAILY PO
     Route: 048
     Dates: start: 19980101, end: 20120613

REACTIONS (3)
  - BLOOD PRESSURE INCREASED [None]
  - ACUTE MYOCARDIAL INFARCTION [None]
  - BLOOD CHOLESTEROL INCREASED [None]
